FAERS Safety Report 11923495 (Version 1)
Quarter: 2016Q1

REPORT INFORMATION
  Report Type: Report from Study
  Country: US (occurrence: US)
  Receive Date: 20160118
  Receipt Date: 20160118
  Transmission Date: 20160526
  Serious: No
  Sender: FDA-Public Use
  Company Number: US-AMGEN-USASL2016002950

PATIENT
  Age: 63 Year
  Sex: Male

DRUGS (1)
  1. ENBREL [Suspect]
     Active Substance: ETANERCEPT
     Indication: PSORIASIS
     Dosage: 50 MG, QWK
     Route: 065
     Dates: start: 20151207

REACTIONS (6)
  - Skin plaque [Unknown]
  - Arthralgia [Unknown]
  - Laceration [Unknown]
  - Skin haemorrhage [Unknown]
  - Bleeding time prolonged [Unknown]
  - Drug effect incomplete [Unknown]
